FAERS Safety Report 26097784 (Version 2)
Quarter: 2025Q4

REPORT INFORMATION
  Report Type: Spontaneous
  Country: EU (occurrence: EU)
  Receive Date: 20251127
  Receipt Date: 20251209
  Transmission Date: 20260118
  Serious: Yes (Other)
  Sender: TEVA
  Company Number: EU-TEVA-VS-3396435

PATIENT
  Age: 74 Year
  Sex: Male

DRUGS (5)
  1. LENALIDOMIDE [Suspect]
     Active Substance: LENALIDOMIDE
     Indication: Cryoglobulinaemia
     Route: 065
     Dates: start: 20240418
  2. LENALIDOMIDE [Suspect]
     Active Substance: LENALIDOMIDE
     Indication: Cryoglobulinaemia
     Route: 065
     Dates: end: 20240508
  3. MYCOPHENOLATE MOFETIL [Concomitant]
     Active Substance: MYCOPHENOLATE MOFETIL
     Indication: Cryoglobulinaemia
     Route: 065
     Dates: start: 20160413
  4. DEXAMETHASONE [Suspect]
     Active Substance: DEXAMETHASONE
     Indication: Cryoglobulinaemia
     Route: 065
     Dates: start: 20240418, end: 20240508
  5. DARATUMUMAB [Suspect]
     Active Substance: DARATUMUMAB
     Indication: Cryoglobulinaemia
     Route: 065
     Dates: start: 20240418, end: 20240508

REACTIONS (1)
  - Cryoglobulinaemia [Recovered/Resolved]
